FAERS Safety Report 12269523 (Version 1)
Quarter: 2016Q2

REPORT INFORMATION
  Report Type: Spontaneous
  Country: DE (occurrence: DE)
  Receive Date: 20160414
  Receipt Date: 20160414
  Transmission Date: 20160815
  Serious: Yes (Other)
  Sender: FDA-Public Use
  Company Number: DE-WATSON-2016-07154

PATIENT
  Age: 51 Year
  Sex: Male
  Weight: 72 kg

DRUGS (1)
  1. CELECOXIB ACTAVIS [Suspect]
     Active Substance: CELECOXIB
     Indication: RHEUMATOID ARTHRITIS
     Dosage: 200 MG, DAILY
     Route: 048
     Dates: start: 20160307

REACTIONS (4)
  - Chest pain [Unknown]
  - Depression [Unknown]
  - Headache [Unknown]
  - Product substitution issue [Unknown]

NARRATIVE: CASE EVENT DATE: 20160308
